FAERS Safety Report 23442792 (Version 1)
Quarter: 2024Q1

REPORT INFORMATION
  Report Type: Report from Study
  Country: DE (occurrence: DE)
  Receive Date: 20240125
  Receipt Date: 20240125
  Transmission Date: 20240410
  Serious: Yes (Other)
  Sender: FDA-Public Use
  Company Number: DE-MYLANLABS-2024M1007611

PATIENT
  Age: 11 Year
  Sex: Female

DRUGS (3)
  1. LAMOTRIGINE [Suspect]
     Active Substance: LAMOTRIGINE
     Indication: Hereditary ataxia
     Dosage: UNK
     Route: 065
  2. VALPROIC ACID [Suspect]
     Active Substance: VALPROIC ACID
     Indication: Ataxia
     Dosage: UNK
     Route: 065
  3. ACETAZOLAMIDE [Concomitant]
     Active Substance: ACETAZOLAMIDE
     Indication: Ataxia
     Dosage: UNK
     Route: 065

REACTIONS (2)
  - Drug ineffective for unapproved indication [Unknown]
  - Off label use [Unknown]
